FAERS Safety Report 10429582 (Version 1)
Quarter: 2014Q3

REPORT INFORMATION
  Report Type: Spontaneous
  Country: US (occurrence: None)
  Receive Date: 20140801
  Receipt Date: 20140801
  Transmission Date: 20150326
  Serious: No
  Sender: FDA-Public Use
  Company Number: AEUSA201300335

PATIENT
  Age: 54 Year
  Sex: Female
  Weight: 50 kg

DRUGS (3)
  1. GAMUNEX-C [Suspect]
     Active Substance: HUMAN IMMUNOGLOBULIN G
     Indication: PLASMA CELL MYELOMA
     Route: 042
     Dates: start: 20130709, end: 20130710
  2. GAMUNEX-C [Suspect]
     Active Substance: HUMAN IMMUNOGLOBULIN G
     Indication: ACUTE LEUKAEMIA
     Route: 042
     Dates: start: 20130709, end: 20130710
  3. GAMUNEX-C [Suspect]
     Active Substance: HUMAN IMMUNOGLOBULIN G
     Indication: HYPOGAMMAGLOBULINAEMIA
     Route: 042
     Dates: start: 20130709, end: 20130710

REACTIONS (3)
  - Hepatitis B core antibody positive [None]
  - HTLV-1 test positive [None]
  - HTLV-2 test positive [None]

NARRATIVE: CASE EVENT DATE: 20130710
